FAERS Safety Report 8475455-6 (Version None)
Quarter: 2012Q2

REPORT INFORMATION
  Report Type: 
  Country: None (occurrence: None)
  Receive Date: 20120628
  Receipt Date: 20120620
  Transmission Date: 20120825
  Serious: Yes (Hospitalization)
  Sender: FDA-Public Use
  Company Number: US-JNJFOC-20120611690

PATIENT
  Sex: Female
  Weight: 52.62 kg

DRUGS (1)
  1. REMICADE [Suspect]
     Indication: INFLAMMATORY BOWEL DISEASE
     Route: 042
     Dates: start: 20091125, end: 20120601

REACTIONS (1)
  - ABDOMINAL PAIN [None]
